FAERS Safety Report 5975531-3 (Version None)
Quarter: 2008Q4

REPORT INFORMATION
  Report Type: 
  Country: None (occurrence: None)
  Receive Date: 20081202
  Receipt Date: 20080730
  Transmission Date: 20090506
  Serious: No
  Sender: FDA-Public Use
  Company Number: A0740296A

PATIENT

DRUGS (1)
  1. AUGMENTIN '125' [Suspect]

REACTIONS (2)
  - HYPERSENSITIVITY [None]
  - LIVER DISORDER [None]
